FAERS Safety Report 5724036-3 (Version None)
Quarter: 2008Q2

REPORT INFORMATION
  Report Type: 
  Country: None (occurrence: None)
  Receive Date: 20080428
  Receipt Date: 20080415
  Transmission Date: 20081010
  Serious: Yes (Hospitalization)
  Sender: FDA-Public Use
  Company Number: 233577J08USA

PATIENT
  Age: 56 Year
  Sex: Male
  Weight: 85.2762 kg

DRUGS (10)
  1. REBIF [Suspect]
     Indication: MULTIPLE SCLEROSIS
     Dosage: 44 MCG, 3 IN 1 WEEKS, SUBCUTANEOUS
     Route: 058
     Dates: start: 20050531
  2. METOPROLOL TARTRATE [Concomitant]
  3. LISINOPRIL [Concomitant]
  4. B-12 (CYANOCOBALAMIN) [Concomitant]
  5. PROVIGIL [Concomitant]
  6. ARICEPT [Concomitant]
  7. AMIODARONE (AMIODARONE /00133101/) [Concomitant]
  8. FUROSEMIDE (FUROSEMIDE /00032601/) [Concomitant]
  9. FLUVASTATIN (FLUVASTATIN /01224501/) [Concomitant]
  10. COUMADIN [Concomitant]

REACTIONS (2)
  - BRONCHIAL CARCINOMA [None]
  - SMALL CELL CARCINOMA [None]
